FAERS Safety Report 9024923 (Version 1)
Quarter: 2012Q4

REPORT INFORMATION
  Report Type: Spontaneous
  Country: US (occurrence: None)
  Receive Date: 20121231
  Receipt Date: 20121231
  Transmission Date: 20130627
  Serious: Yes (Death, Other)
  Sender: FDA-Public Use
  Company Number: US-JNJFOC-20121210214

PATIENT

DRUGS (3)
  1. DECITABINE [Suspect]
     Indication: ACUTE MYELOID LEUKAEMIA
     Route: 042
  2. AZACITIDINE [Suspect]
     Indication: ACUTE MYELOID LEUKAEMIA
  3. UNSPECIFIED INGREDIENT [Suspect]
     Indication: ACUTE MYELOID LEUKAEMIA

REACTIONS (2)
  - Treatment failure [None]
  - Blood creatinine increased [None]
